FAERS Safety Report 9127989 (Version 2)
Quarter: 2013Q1

REPORT INFORMATION
  Report Type: Spontaneous
  Country: JP (occurrence: JP)
  Receive Date: 20130228
  Receipt Date: 20130312
  Transmission Date: 20140127
  Serious: Yes (Other)
  Sender: FDA-Public Use
  Company Number: JP-PFIZER INC-2013009429

PATIENT
  Age: 59 Year
  Sex: Male
  Weight: 56 kg

DRUGS (21)
  1. ADRIACIN [Suspect]
     Indication: B-CELL LYMPHOMA
     Dosage: 80 MG, 5 COURSES
     Route: 041
     Dates: start: 20061114, end: 20061114
  2. ADRIACIN [Suspect]
     Dosage: 75 MG, 1X/DAY
     Route: 041
     Dates: start: 20061212, end: 20081014
  3. ADRIACIN [Suspect]
     Dosage: 80 MG, 1X/DAY
     Route: 041
     Dates: start: 20081111, end: 20081111
  4. ADRIACIN [Suspect]
     Dosage: 75 MG, 1X/DAY
     Route: 041
     Dates: start: 20100406, end: 20110118
  5. METHOTREXATE SODIUM [Suspect]
     Indication: B-CELL LYMPHOMA
     Dosage: 5800 MG, CYCLIC (5 COURSES)
     Route: 065
  6. METHOTREXATE SODIUM [Suspect]
     Indication: LYMPHOMA
  7. ENDOXAN [Suspect]
     Indication: B-CELL LYMPHOMA
     Dosage: 1200 MG, 5 COURSES;CYCLIC
  8. ONCOVIN [Suspect]
     Indication: B-CELL LYMPHOMA
     Dosage: 2.2 MG, CYCLIC (5 COURSES)
  9. RITUXAN [Suspect]
     Indication: B-CELL LYMPHOMA
     Dosage: 2 COURSES ONCE A WEEK FOR 1 WEEKS, SUBSEQUENTLY 2 ADDITIONAL COURSES
  10. PREDNISOLONE [Concomitant]
     Indication: B-CELL LYMPHOMA
     Dosage: 360 MG, CYCLIC (5 COURSES)
     Route: 065
  11. PREDNISOLONE [Concomitant]
     Dosage: TWO ADDITIONAL COURSES
  12. THYRADIN S [Concomitant]
     Dosage: 50 UG, 2X/DAY
     Route: 048
     Dates: start: 20080825
  13. MERISLON [Concomitant]
     Dosage: 6 MG, 3X/DAY
     Route: 048
     Dates: start: 20080825
  14. HARNAL [Concomitant]
     Dosage: 2 MG, 1X/DAY
     Route: 048
     Dates: start: 20080825
  15. SELBEX [Concomitant]
     Dosage: 50 MG, 3X/DAY
     Route: 048
     Dates: start: 20080825
  16. GASTER D [Concomitant]
     Dosage: 20 MG, 2X/DAY
     Route: 048
     Dates: start: 20080825
  17. AMLODIN OD [Concomitant]
     Dosage: 5 MG, 1X/DAY
     Route: 048
     Dates: start: 20080825
  18. BAKTAR [Concomitant]
     Dosage: 2 DF, 2X/DAY
     Route: 048
     Dates: start: 20080825
  19. SELBEX [Concomitant]
     Dosage: 50 MG, 3X/DAY
     Route: 048
     Dates: start: 20121013
  20. MAGMITT [Concomitant]
     Dosage: 330 MG, 3X/DAY
     Route: 048
     Dates: start: 20121013
  21. URSO [Concomitant]
     Dosage: 100 MG, 3X/DAY
     Route: 048
     Dates: start: 20121013

REACTIONS (1)
  - Sweat gland tumour [Recovered/Resolved]
